FAERS Safety Report 9262554 (Version 1)
Quarter: 2020Q3

REPORT INFORMATION
  Report Type: Spontaneous
  Country: FR (occurrence: FR)
  Receive Date: 20130430
  Receipt Date: 20130430
  Transmission Date: 20201105
  Serious: Yes (Hospitalization)
  Sender: FDA-Public Use
  Company Number: FR-ROCHE-1218510

PATIENT
  Age: 50 Year
  Sex: Male

DRUGS (8)
  1. COPEGUS [Suspect]
     Active Substance: RIBAVIRIN
     Indication: CHRONIC HEPATITIS C
     Route: 048
     Dates: start: 201004, end: 201102
  2. DANOPREVIR. [Suspect]
     Active Substance: DANOPREVIR
     Indication: CHRONIC HEPATITIS C
     Route: 065
  3. PEGASYS [Suspect]
     Active Substance: PEGINTERFERON ALFA-2A
     Indication: HEPATIC FIBROSIS
     Route: 058
     Dates: start: 201109, end: 20120215
  4. DANOPREVIR. [Suspect]
     Active Substance: DANOPREVIR
     Indication: HEPATIC FIBROSIS
  5. NORVIR [Suspect]
     Active Substance: RITONAVIR
     Indication: HEPATIC FIBROSIS
  6. PEGASYS [Suspect]
     Active Substance: PEGINTERFERON ALFA-2A
     Indication: CHRONIC HEPATITIS C
     Route: 058
     Dates: start: 201004, end: 201102
  7. NORVIR [Suspect]
     Active Substance: RITONAVIR
     Indication: CHRONIC HEPATITIS C
     Route: 048
     Dates: start: 201109, end: 20120215
  8. COPEGUS [Suspect]
     Active Substance: RIBAVIRIN
     Indication: HEPATIC FIBROSIS
     Route: 048
     Dates: start: 201109, end: 20120215

REACTIONS (1)
  - Porphyria non-acute [Recovered/Resolved with Sequelae]
